FAERS Safety Report 7817324-8 (Version None)
Quarter: 2011Q4

REPORT INFORMATION
  Report Type: 
  Country: None (occurrence: None)
  Receive Date: 20111017
  Receipt Date: 20111006
  Transmission Date: 20120403
  Serious: Yes (Hospitalization)
  Sender: FDA-Public Use
  Company Number: US-US-EMD SERONO, INC.-7088215

PATIENT
  Sex: Female

DRUGS (1)
  1. REBIF [Suspect]
     Indication: PRODUCT USED FOR UNKNOWN INDICATION
     Route: 058
     Dates: start: 20110524

REACTIONS (5)
  - BLOOD POTASSIUM DECREASED [None]
  - INFUSION SITE PAIN [None]
  - WEIGHT DECREASED [None]
  - CONFUSIONAL STATE [None]
  - HYPOAESTHESIA [None]
